FAERS Safety Report 12355000 (Version 1)
Quarter: 2016Q2

REPORT INFORMATION
  Report Type: Spontaneous
  Country: US (occurrence: None)
  Receive Date: 20160510
  Receipt Date: 20160510
  Transmission Date: 20160815
  Serious: Yes (Life-Threatening, Hospitalization)
  Sender: FDA-Public Use
  Company Number: None

PATIENT
  Age: 67 Year
  Sex: Male
  Weight: 90.5 kg

DRUGS (1)
  1. INFLIXIMAB [Suspect]
     Active Substance: INFLIXIMAB
     Indication: PSORIATIC ARTHROPATHY
     Dosage: 500 MG OTHER IV
     Route: 042
     Dates: start: 20131220, end: 20160311

REACTIONS (11)
  - Anaphylactic reaction [None]
  - Syncope [None]
  - Carditis [None]
  - Angioedema [None]
  - Metastases to meninges [None]
  - Throat tightness [None]
  - Lyme disease [None]
  - Urticaria [None]
  - Pruritus [None]
  - Infusion related reaction [None]
  - Neuroborreliosis [None]

NARRATIVE: CASE EVENT DATE: 20160311
